FAERS Safety Report 7246400-6 (Version None)
Quarter: 2011Q1

REPORT INFORMATION
  Report Type: 
  Country: None (occurrence: None)
  Receive Date: 20110126
  Receipt Date: 20100304
  Transmission Date: 20110831
  Serious: No
  Sender: FDA-Public Use
  Company Number: US-BAUSCH-2010BL001221

PATIENT
  Age: 55 Year
  Sex: Female

DRUGS (4)
  1. ZYLET [Suspect]
     Indication: EYE PRURITUS
     Route: 047
     Dates: start: 20100220, end: 20100227
  2. ZYLET [Suspect]
     Indication: EYE IRRITATION
     Route: 047
     Dates: start: 20100220, end: 20100227
  3. LIPITOR [Concomitant]
     Indication: BLOOD CHOLESTEROL INCREASED
     Route: 048
  4. ZYLET [Suspect]
     Indication: EYE INFECTION
     Route: 047
     Dates: start: 20100220, end: 20100227

REACTIONS (1)
  - OCULAR HYPERAEMIA [None]
